FAERS Safety Report 16462059 (Version 1)
Quarter: 2019Q2

REPORT INFORMATION
  Report Type: Spontaneous
  Country: US (occurrence: US)
  Receive Date: 20190621
  Receipt Date: 20190621
  Transmission Date: 20190711
  Serious: Yes (Death)
  Sender: FDA-Public Use
  Company Number: US-INSYS THERAPEUTICS, INC-INS201906-000378

PATIENT
  Age: 36 Year
  Sex: Male

DRUGS (14)
  1. FENTANYL. [Suspect]
     Active Substance: FENTANYL
     Indication: PRODUCT USED FOR UNKNOWN INDICATION
  2. TETRAHYDROFURANYL FENTANYL [Suspect]
     Active Substance: TETRAHYDROFURANYL FENTANYL
     Indication: PRODUCT USED FOR UNKNOWN INDICATION
  3. MIDAZOLAM [Suspect]
     Active Substance: MIDAZOLAM HYDROCHLORIDE
     Indication: GENERALISED TONIC-CLONIC SEIZURE
  4. NORFENTANYL [Suspect]
     Active Substance: NORFENTANYL
     Indication: PRODUCT USED FOR UNKNOWN INDICATION
  5. METHADONE [Suspect]
     Active Substance: METHADONE HYDROCHLORIDE
     Indication: PRODUCT USED FOR UNKNOWN INDICATION
  6. 4-ANILINO-N-PHENETHYLPIPERIDINE [Suspect]
     Active Substance: DEPROPIONYLFENTANYL
     Indication: PRODUCT USED FOR UNKNOWN INDICATION
  7. ATROPINE. [Concomitant]
     Active Substance: ATROPINE
  8. NALOXONE [Suspect]
     Active Substance: NALOXONE
     Indication: GENERALISED TONIC-CLONIC SEIZURE
  9. EPINEPHRINE. [Concomitant]
     Active Substance: EPINEPHRINE
  10. DOPAMINE [Concomitant]
     Active Substance: DOPAMINE\DOPAMINE HYDROCHLORIDE
  11. AMIODARONE [Concomitant]
     Active Substance: AMIODARONE
  12. METHAMPHETAMINE [Suspect]
     Active Substance: METHAMPHETAMINE
     Indication: PRODUCT USED FOR UNKNOWN INDICATION
  13. TRAMADOL. [Suspect]
     Active Substance: TRAMADOL
     Indication: PRODUCT USED FOR UNKNOWN INDICATION
  14. AMPHETAMINE [Suspect]
     Active Substance: AMPHETAMINE
     Indication: PRODUCT USED FOR UNKNOWN INDICATION

REACTIONS (3)
  - Serotonin syndrome [Fatal]
  - Overdose [Fatal]
  - Cardiac arrest [Fatal]
